FAERS Safety Report 9744863 (Version 1)
Quarter: 2013Q4

REPORT INFORMATION
  Report Type: Spontaneous
  Country: US (occurrence: US)
  Receive Date: 20131211
  Receipt Date: 20131211
  Transmission Date: 20140711
  Serious: Yes (Hospitalization)
  Sender: FDA-Public Use
  Company Number: US-ROCHE-1312990

PATIENT
  Age: 75 Year
  Sex: Male

DRUGS (6)
  1. RITUXAN [Suspect]
     Indication: NON-HODGKIN^S LYMPHOMA
     Dosage: FOR 3 YEARS, MAINTENANCE
     Route: 065
  2. RITUXAN [Suspect]
     Dosage: MAINTENANCE
     Route: 065
     Dates: start: 201311
  3. HYDROXYDAUNORUBICIN [Concomitant]
     Indication: NON-HODGKIN^S LYMPHOMA
  4. VINCRISTINE [Concomitant]
  5. PREDNISOLONE [Concomitant]
  6. ZITHROMAX [Concomitant]

REACTIONS (9)
  - Nephropathy toxic [Unknown]
  - Lymphadenopathy [Recovered/Resolved]
  - White blood cell count decreased [Unknown]
  - Nasopharyngitis [Not Recovered/Not Resolved]
  - Nasal congestion [Not Recovered/Not Resolved]
  - Rhinorrhoea [Not Recovered/Not Resolved]
  - Oropharyngeal pain [Not Recovered/Not Resolved]
  - Sleep apnoea syndrome [Unknown]
  - Dyspnoea [Unknown]
